FAERS Safety Report 9838409 (Version 1)
Quarter: 2014Q1

REPORT INFORMATION
  Report Type: Spontaneous
  Country: CA (occurrence: CA)
  Receive Date: 20140123
  Receipt Date: 20140123
  Transmission Date: 20141002
  Serious: Yes (Other)
  Sender: FDA-Public Use
  Company Number: CA-ASTRAZENECA-2014SE03895

PATIENT
  Age: 67 Year
  Sex: Male

DRUGS (2)
  1. SYMBICORT TURBUHALER [Suspect]
     Route: 055
  2. FLOVENT HFA [Suspect]
     Route: 065

REACTIONS (5)
  - Asthenia [Unknown]
  - Electrocardiogram QT prolonged [Unknown]
  - Dysphonia [Unknown]
  - Palpitations [Unknown]
  - Throat irritation [Unknown]
